FAERS Safety Report 7241289-3 (Version None)
Quarter: 2011Q1

REPORT INFORMATION
  Report Type: 
  Country: None (occurrence: None)
  Receive Date: 20110124
  Receipt Date: 20110114
  Transmission Date: 20110831
  Serious: Yes (Life-Threatening, Hospitalization, Disabling, Other)
  Sender: FDA-Public Use
  Company Number: B0693617A

PATIENT
  Sex: Female

DRUGS (19)
  1. LASIX [Suspect]
     Route: 048
  2. BROMAZEPAM [Concomitant]
     Route: 048
  3. ELISOR [Concomitant]
     Dosage: 20MG PER DAY
     Route: 048
  4. RIFADIN [Concomitant]
     Indication: SKIN INFECTION
     Dosage: 200MG THREE TIMES PER DAY
     Route: 048
     Dates: start: 20100701, end: 20101101
  5. KARDEGIC [Concomitant]
     Indication: PROPHYLAXIS
     Dosage: 75MG PER DAY
     Route: 048
  6. CARDENSIEL [Concomitant]
     Dosage: 1.25MG PER DAY
     Route: 048
  7. LAROXYL [Suspect]
     Dosage: 10DROP PER DAY
     Route: 048
     Dates: end: 20101101
  8. PRIMPERAN TAB [Suspect]
     Dosage: 1UNIT THREE TIMES PER DAY
     Route: 042
     Dates: end: 20101101
  9. NEXIUM [Concomitant]
     Indication: PROPHYLAXIS
     Dosage: 20MG PER DAY
     Route: 048
  10. INNOHEP [Concomitant]
     Indication: PULMONARY EMBOLISM
     Dosage: .6ML PER DAY
     Route: 058
  11. AMIKACIN [Concomitant]
     Indication: SKIN INFECTION
     Dates: start: 20100701, end: 20100701
  12. FORTUM [Suspect]
     Indication: SKIN INFECTION
     Route: 042
     Dates: start: 20100701, end: 20101101
  13. SEROPLEX [Suspect]
     Indication: ANXIETY
     Dosage: 10MG PER DAY
     Route: 048
     Dates: end: 20101101
  14. DALACINE [Concomitant]
     Indication: SKIN INFECTION
     Dosage: 600MG THREE TIMES PER DAY
     Route: 042
     Dates: start: 20100701
  15. LYRICA [Concomitant]
     Indication: ANXIETY
     Dosage: 100MG TWICE PER DAY
     Route: 048
  16. TRIATEC [Suspect]
     Dosage: 2.5MG PER DAY
     Route: 048
  17. LEXOMIL [Concomitant]
     Indication: ANXIETY
     Dosage: .75TAB PER DAY
     Route: 048
  18. DOLIPRANE [Concomitant]
     Indication: PAIN
     Dosage: 1G FOUR TIMES PER DAY
     Route: 048
  19. CONTRAMAL [Concomitant]
     Indication: PAIN
     Dosage: 50MG FOUR TIMES PER DAY
     Route: 048
     Dates: end: 20101101

REACTIONS (13)
  - VISUAL ACUITY REDUCED [None]
  - METABOLIC ENCEPHALOPATHY [None]
  - MYOCLONUS [None]
  - ANTEROGRADE AMNESIA [None]
  - VOMITING [None]
  - CLONUS [None]
  - DISTURBANCE IN ATTENTION [None]
  - DELIRIUM [None]
  - ECHOLALIA [None]
  - EPILEPSY [None]
  - RENAL FAILURE ACUTE [None]
  - DRUG INTERACTION [None]
  - PERSEVERATION [None]
